FAERS Safety Report 23322429 (Version 2)
Quarter: 2024Q1

REPORT INFORMATION
  Report Type: Spontaneous
  Country: US (occurrence: US)
  Receive Date: 20231220
  Receipt Date: 20240122
  Transmission Date: 20240410
  Serious: No
  Sender: FDA-Public Use
  Company Number: US-BRISTOL-MYERS SQUIBB COMPANY-2023-184934

PATIENT
  Age: 91 Year
  Sex: Female
  Weight: 51.71 kg

DRUGS (1)
  1. REVLIMID [Suspect]
     Active Substance: LENALIDOMIDE
     Indication: Follicular lymphoma
     Route: 048
     Dates: start: 20220801

REACTIONS (4)
  - Respiratory tract congestion [Not Recovered/Not Resolved]
  - Off label use [Unknown]
  - Head discomfort [Unknown]
  - Rhinorrhoea [Not Recovered/Not Resolved]
